FAERS Safety Report 5845101-6 (Version None)
Quarter: 2008Q3

REPORT INFORMATION
  Report Type: 
  Country: None (occurrence: None)
  Receive Date: 20080813
  Receipt Date: 20080813
  Transmission Date: 20090109
  Serious: Yes (Hospitalization)
  Sender: FDA-Public Use
  Company Number: None

PATIENT
  Sex: Female
  Weight: 67.8 kg

DRUGS (1)
  1. MACRODANTIN [Suspect]
     Indication: URINARY TRACT INFECTION
     Dosage: 100MG TWICE DAILY PO
     Route: 048
     Dates: start: 20080727, end: 20080802

REACTIONS (3)
  - MYALGIA [None]
  - NAUSEA [None]
  - PULMONARY EMBOLISM [None]
